FAERS Safety Report 5315073-1 (Version None)
Quarter: 2007Q2

REPORT INFORMATION
  Report Type: 
  Country: None (occurrence: None)
  Receive Date: 20070502
  Receipt Date: 20070420
  Transmission Date: 20071010
  Serious: Yes (Other)
  Sender: FDA-Public Use
  Company Number: US-PFIZER INC-2007032842

PATIENT
  Sex: Female
  Weight: 59.09 kg

DRUGS (2)
  1. CHANTIX [Suspect]
     Indication: SMOKING CESSATION THERAPY
     Dates: start: 20070101, end: 20070101
  2. PROZAC [Concomitant]

REACTIONS (8)
  - ASTHENIA [None]
  - DECREASED APPETITE [None]
  - HEADACHE [None]
  - MALAISE [None]
  - NAUSEA [None]
  - VIRAL INFECTION [None]
  - VOMITING [None]
  - WEIGHT DECREASED [None]
